FAERS Safety Report 9588461 (Version 1)
Quarter: 2013Q4

REPORT INFORMATION
  Report Type: Spontaneous
  Country: US (occurrence: US)
  Receive Date: 20131003
  Receipt Date: 20131003
  Transmission Date: 20140711
  Serious: No
  Sender: FDA-Public Use
  Company Number: US-AMGEN-USASP2012064192

PATIENT
  Sex: Female
  Weight: 111 kg

DRUGS (8)
  1. ENBREL [Suspect]
     Indication: PSORIASIS
     Dosage: 50 MG, QWK
     Route: 058
     Dates: start: 2002
  2. PREMARIN [Concomitant]
     Dosage: 0.625 MG, UNK
  3. LISINOPRIL [Concomitant]
     Dosage: 2.5 MG, UNK
  4. NOVOLOG [Concomitant]
     Dosage: 70/30
  5. LEVEMIR [Concomitant]
     Dosage: UNK
  6. LEVOTHYROXIN [Concomitant]
     Dosage: 100 MUG, UNK
  7. VITAMINS WITH MINERALS [Concomitant]
     Dosage: UNK
  8. ASPIRIN [Concomitant]
     Dosage: 81 MG EC

REACTIONS (1)
  - Drug ineffective [Unknown]
